FAERS Safety Report 5243954-6 (Version None)
Quarter: 2007Q1

REPORT INFORMATION
  Report Type: 
  Country: None (occurrence: None)
  Receive Date: 20070222
  Receipt Date: 20070216
  Transmission Date: 20070707
  Serious: Yes (Hospitalization, Other)
  Sender: FDA-Public Use
  Company Number: JP-AVENTIS-200613987JP

PATIENT

DRUGS (1)
  1. ARAVA [Suspect]

REACTIONS (5)
  - ALOPECIA [None]
  - CEREBRAL INFARCTION [None]
  - DIVERTICULITIS [None]
  - HEPATIC FUNCTION ABNORMAL [None]
  - PULMONARY FIBROSIS [None]
